FAERS Safety Report 21915388 (Version 1)
Quarter: 2023Q1

REPORT INFORMATION
  Report Type: Spontaneous
  Country: US (occurrence: None)
  Receive Date: 20230125
  Receipt Date: 20230125
  Transmission Date: 20230418
  Serious: Yes (Hospitalization, Disabling)
  Sender: FDA-Public Use
  Company Number: None

PATIENT
  Age: 69 Year
  Sex: Male

DRUGS (18)
  1. CAPECITABINE [Suspect]
     Active Substance: CAPECITABINE
     Indication: Oesophageal carcinoma
     Dosage: FREQUENCY : TWICE A DAY;?
     Route: 048
     Dates: start: 202210
  2. AMLODIPINE [Concomitant]
  3. CALTRATE [Concomitant]
  4. CARVEDILOL [Concomitant]
     Active Substance: CARVEDILOL
  5. CYCLOSPORINE [Concomitant]
  6. FAMOTIDINE [Concomitant]
  7. FUROSEMIDE [Concomitant]
  8. GLIPIZIDE [Concomitant]
  9. LORAZEPAM [Concomitant]
     Active Substance: LORAZEPAM
  10. MAGNESIUM [Concomitant]
  11. MYCOPHENOLATE [Concomitant]
  12. OXYCODONE [Concomitant]
  13. PANTOPRAZOLE [Concomitant]
  14. POTASSIUM [Concomitant]
  15. PREDNISONE [Concomitant]
  16. PROBENECID/COLCHICINE [Concomitant]
  17. PROCHLORPERAZINE [Concomitant]
  18. TORSEMIDE [Concomitant]

REACTIONS (2)
  - Dysphagia [None]
  - Therapy interrupted [None]

NARRATIVE: CASE EVENT DATE: 20230123
